FAERS Safety Report 6158601-9 (Version None)
Quarter: 2009Q2

REPORT INFORMATION
  Report Type: 
  Country: None (occurrence: None)
  Receive Date: 20090408
  Receipt Date: 20080715
  Transmission Date: 20091009
  Serious: Yes (Death)
  Sender: FDA-Public Use
  Company Number: 174399USA

PATIENT
  Age: 45 Year
  Sex: Female

DRUGS (2)
  1. TRAZODONE HYDROCHLORIDE [Suspect]
     Dosage: ORAL
     Route: 048
  2. TYLOX [Suspect]
     Indication: PAIN
     Dosage: (200 MG), ORAL
     Route: 048

REACTIONS (1)
  - SYNCOPE [None]
